FAERS Safety Report 14134017 (Version 1)
Quarter: 2017Q4

REPORT INFORMATION
  Report Type: Spontaneous
  Country: US (occurrence: None)
  Receive Date: 20171026
  Receipt Date: 20171026
  Transmission Date: 20180321
  Serious: Yes (Hospitalization)
  Sender: FDA-Public Use
  Company Number: None

PATIENT
  Age: 55 Year
  Sex: Female
  Weight: 74.5 kg

DRUGS (12)
  1. RIFAXIMIN. [Concomitant]
     Active Substance: RIFAXIMIN
  2. PRAVASTATIN. [Concomitant]
     Active Substance: PRAVASTATIN
  3. BUPROPION. [Concomitant]
     Active Substance: BUPROPION
  4. CHOLECALCIFEROL [Concomitant]
     Active Substance: CHOLECALCIFEROL
  5. LOSARTAN. [Concomitant]
     Active Substance: LOSARTAN
  6. OMEPRAZOLE. [Concomitant]
     Active Substance: OMEPRAZOLE
  7. VENLAFAXINE [Concomitant]
     Active Substance: VENLAFAXINE HYDROCHLORIDE
  8. FENTANYL. [Suspect]
     Active Substance: FENTANYL
  9. ALBUTEROL. [Concomitant]
     Active Substance: ALBUTEROL
  10. LEVEMIR [Concomitant]
     Active Substance: INSULIN DETEMIR
  11. NOVOLOG [Concomitant]
     Active Substance: INSULIN ASPART
  12. VERSED [Suspect]
     Active Substance: MIDAZOLAM HYDROCHLORIDE

REACTIONS (1)
  - Hypotension [None]

NARRATIVE: CASE EVENT DATE: 20170503
